FAERS Safety Report 9772207 (Version 1)
Quarter: 2013Q4

REPORT INFORMATION
  Report Type: Spontaneous
  Country: US (occurrence: None)
  Receive Date: 20131218
  Receipt Date: 20131218
  Transmission Date: 20140711
  Serious: No
  Sender: FDA-Public Use
  Company Number: None

PATIENT
  Age: 21 Year
  Sex: Male

DRUGS (1)
  1. GAMUNEX C [Suspect]
     Route: 042
     Dates: start: 20130916, end: 20131213

REACTIONS (5)
  - Grimacing [None]
  - Rash [None]
  - Musculoskeletal pain [None]
  - Musculoskeletal pain [None]
  - Musculoskeletal discomfort [None]
